FAERS Safety Report 8616810-0 (Version None)
Quarter: 2012Q3

REPORT INFORMATION
  Report Type: 
  Country: None (occurrence: None)
  Receive Date: 20120823
  Receipt Date: 20120807
  Transmission Date: 20120928
  Serious: No
  Sender: FDA-Public Use
  Company Number: US-009507513-2012SP030874

PATIENT

DRUGS (3)
  1. SUDAFED 12 HOUR [Concomitant]
     Indication: PRODUCT USED FOR UNKNOWN INDICATION
  2. DULERA [Suspect]
     Indication: ASTHMA
     Dosage: 200/5MCG, BID
     Route: 055
     Dates: start: 20110101
  3. SINGULAIR [Concomitant]

REACTIONS (1)
  - DRUG EFFECT DECREASED [None]
